FAERS Safety Report 17792698 (Version 5)
Quarter: 2021Q2

REPORT INFORMATION
  Report Type: Spontaneous
  Country: CA (occurrence: CA)
  Receive Date: 20200515
  Receipt Date: 20210511
  Transmission Date: 20210716
  Serious: Yes (Other)
  Sender: FDA-Public Use
  Company Number: CA-APOTEX-2020AP010709

PATIENT
  Age: 58 Year
  Sex: Male

DRUGS (25)
  1. BETAMETHASONE. [Concomitant]
     Active Substance: BETAMETHASONE
     Indication: PRODUCT USED FOR UNKNOWN INDICATION
     Dosage: 9 MG, Q.H.S.
     Route: 065
     Dates: start: 202004
  2. BETAMETHASONE. [Concomitant]
     Active Substance: BETAMETHASONE
     Dosage: 3 MG, Q.H.S.
     Route: 065
     Dates: start: 202004
  3. FENTANYL. [Concomitant]
     Active Substance: FENTANYL
     Indication: SEDATION
     Dosage: 50 ?G, QD
     Route: 042
     Dates: start: 20200423, end: 20200423
  4. INFLIXIMAB [Suspect]
     Active Substance: INFLIXIMAB
     Dosage: 400 MILLIGRAM
     Route: 042
  5. FOLIC ACID. [Concomitant]
     Active Substance: FOLIC ACID
     Indication: PRODUCT USED FOR UNKNOWN INDICATION
     Dosage: UNK
     Route: 065
  6. BETAMETHASONE. [Concomitant]
     Active Substance: BETAMETHASONE
     Dosage: 6 MILLIGRAM, QD
     Route: 065
  7. RANITIDINE. [Suspect]
     Active Substance: RANITIDINE
     Indication: ABDOMINAL PAIN UPPER
     Dosage: 150 MG, BID
     Route: 065
  8. INFLECTRA                          /01445601/ [Suspect]
     Active Substance: INFLIXIMAB
     Dosage: 400 MG, EVERY 0, 2, 6, 8 WEK
     Route: 042
     Dates: start: 20191129
  9. METHOTREXATE. [Concomitant]
     Active Substance: METHOTREXATE
     Indication: PRODUCT USED FOR UNKNOWN INDICATION
     Dosage: 25 MG, Q.WK.
     Route: 065
  10. BETAMETHASONE. [Concomitant]
     Active Substance: BETAMETHASONE
     Dosage: 9 MILLIGRAM, QD
     Route: 065
     Dates: start: 202004
  11. BETAMETHASONE. [Concomitant]
     Active Substance: BETAMETHASONE
     Dosage: 3 MILLIGRAM, QD
     Route: 065
     Dates: start: 202004
  12. MIDAZOLAM HYDROCHLORIDE. [Concomitant]
     Active Substance: MIDAZOLAM HYDROCHLORIDE
     Indication: SEDATION
     Dosage: 7 MILLIGRAM, QD
     Route: 042
  13. INFLIXIMAB [Suspect]
     Active Substance: INFLIXIMAB
     Dosage: 350 MILLIGRAM
     Route: 042
  14. BETAMETHASONE. [Concomitant]
     Active Substance: BETAMETHASONE
     Indication: DIARRHOEA
     Dosage: 6 MG, Q.H.S.
     Route: 065
     Dates: start: 202004
  15. INFLECTRA                          /01445601/ [Suspect]
     Active Substance: INFLIXIMAB
     Indication: COLITIS ULCERATIVE
     Dosage: 350 MG, EVERY 8 WEEK
     Route: 042
     Dates: start: 20191011
  16. INFLECTRA                          /01445601/ [Suspect]
     Active Substance: INFLIXIMAB
     Dosage: 400 UNK, EVERY 0, 2, 6, 8 WEK
     Route: 042
     Dates: start: 20191129
  17. ENTOCORT ENEMA [Concomitant]
     Indication: DIARRHOEA
     Dosage: UNK
     Route: 065
  18. INFLECTRA                          /01445601/ [Suspect]
     Active Substance: INFLIXIMAB
     Dosage: 700 MG, EVERY 8 WEEK
     Route: 042
     Dates: start: 20200324
  19. INFLECTRA                          /01445601/ [Suspect]
     Active Substance: INFLIXIMAB
     Dosage: 400 MG, EVERY 0, 2, 6, 8 WEEK
     Route: 042
     Dates: start: 20191115, end: 20191129
  20. INFLECTRA                          /01445601/ [Suspect]
     Active Substance: INFLIXIMAB
     Dosage: 700 MG, EVERY 8 WEEK
     Route: 042
     Dates: start: 20191230
  21. INFLECTRA                          /01445601/ [Suspect]
     Active Substance: INFLIXIMAB
     Dosage: 700 MG, EVERY 8 WEEK
     Route: 042
     Dates: start: 20200211
  22. VERSED [Concomitant]
     Active Substance: MIDAZOLAM HYDROCHLORIDE
     Indication: SEDATION
     Dosage: 7 MG, QD
     Route: 042
     Dates: start: 20200423, end: 20200423
  23. INFLIXIMAB [Suspect]
     Active Substance: INFLIXIMAB
     Indication: COLITIS ULCERATIVE
     Dosage: 700 MILLIGRAM
     Route: 042
  24. INFLIXIMAB [Suspect]
     Active Substance: INFLIXIMAB
     Dosage: 400 MILLIGRAM
     Route: 042
  25. PANTOPRAZOLE [Concomitant]
     Active Substance: PANTOPRAZOLE
     Indication: DUODENAL ULCER
     Dosage: 40 MG, QD
     Route: 048
     Dates: start: 202004

REACTIONS (2)
  - Weight decreased [Unknown]
  - Drug ineffective [Unknown]

NARRATIVE: CASE EVENT DATE: 201910
